FAERS Safety Report 4805615-4 (Version None)
Quarter: 2005Q4

REPORT INFORMATION
  Report Type: 
  Country: None (occurrence: None)
  Receive Date: 20051021
  Receipt Date: 20051017
  Transmission Date: 20060501
  Serious: Yes (Hospitalization)
  Sender: FDA-Public Use
  Company Number: 200513385FR

PATIENT
  Age: 56 Year
  Sex: Male

DRUGS (2)
  1. BIRODOGYL [Suspect]
     Indication: TOOTHACHE
     Route: 048
     Dates: start: 20050612, end: 20050615
  2. ADVIL [Concomitant]
     Indication: TOOTHACHE
     Route: 048
     Dates: start: 20050612, end: 20050619

REACTIONS (4)
  - DRUG HYPERSENSITIVITY [None]
  - MALAISE [None]
  - PYREXIA [None]
  - RASH [None]
